FAERS Safety Report 9580116 (Version 5)
Quarter: 2013Q4

REPORT INFORMATION
  Report Type: Report from Study
  Country: CA (occurrence: CA)
  Receive Date: 20131002
  Receipt Date: 20131217
  Transmission Date: 20140711
  Serious: Yes (Other)
  Sender: FDA-Public Use
  Company Number: CA-ALEXION PHARMACEUTICALS INC.-A201302488

PATIENT
  Age: 61 Year
  Sex: Female
  Weight: 54.4 kg

DRUGS (14)
  1. SOLIRIS [Suspect]
     Indication: PAROXYSMAL NOCTURNAL HAEMOGLOBINURIA
     Dosage: 600 MG, QW
     Route: 042
     Dates: start: 20130523, end: 20130613
  2. SOLIRIS [Suspect]
     Dosage: 900 MG, QW
     Route: 042
     Dates: start: 20130620
  3. SOLIRIS [Suspect]
     Dosage: UNK
  4. FUROSEMIDE [Concomitant]
     Indication: JOINT SWELLING
     Dosage: 20 MG, QD
     Route: 048
     Dates: start: 20130430, end: 20131101
  5. NEORAL [Concomitant]
     Indication: IMMUNOSUPPRESSION
     Dosage: 200 MG, QD
     Route: 048
     Dates: start: 20130429
  6. NEORAL [Concomitant]
     Dosage: 50 MG, QD
     Route: 048
     Dates: start: 20130429
  7. MEPRON [Concomitant]
     Indication: ANTIBIOTIC THERAPY
     Dosage: 10 ML, QD
     Route: 048
     Dates: start: 20130421
  8. AMLODIPINE [Concomitant]
     Indication: HYPERTENSION
     Dosage: 7.5 MG, QD
     Route: 048
     Dates: start: 20130417
  9. PREDNISONE [Concomitant]
     Indication: STEROID THERAPY
     Dosage: 5 MG, QD
     Route: 048
     Dates: start: 20130408
  10. PAXIL [Concomitant]
     Indication: DEPRESSION
     Dosage: 20 MG, QD
     Route: 048
     Dates: start: 20130402, end: 20131101
  11. RAMIPRIL [Concomitant]
     Indication: HYPERTENSION
     Dosage: 10 MG, QD
     Route: 048
     Dates: start: 20130402
  12. VALTREX [Concomitant]
     Indication: PROPHYLAXIS
     Dosage: 500 MG, BID
     Route: 048
     Dates: start: 20130402
  13. TRAZODONE [Concomitant]
     Indication: DEPRESSION
     Dosage: 50 MG, QD
     Route: 048
     Dates: start: 20130402, end: 20131101
  14. PAROXETINE [Concomitant]
     Indication: DEPRESSION
     Dosage: 20 MG, QD
     Route: 048
     Dates: start: 20130402

REACTIONS (7)
  - Platelet count decreased [Not Recovered/Not Resolved]
  - Haemoglobin decreased [Recovered/Resolved]
  - Ocular hyperaemia [Not Recovered/Not Resolved]
  - Contusion [Not Recovered/Not Resolved]
  - Inappropriate schedule of drug administration [Not Recovered/Not Resolved]
  - Eye inflammation [Not Recovered/Not Resolved]
  - Fatigue [Not Recovered/Not Resolved]
